FAERS Safety Report 23920138 (Version 1)
Quarter: 2024Q2

REPORT INFORMATION
  Report Type: Spontaneous
  Country: JP (occurrence: JP)
  Receive Date: 20240530
  Receipt Date: 20240530
  Transmission Date: 20240715
  Serious: No
  Sender: FDA-Public Use
  Company Number: JP-PFIZER INC-PV202400068455

PATIENT
  Age: 4 Year

DRUGS (1)
  1. NGENLA [Suspect]
     Active Substance: SOMATROGON-GHLA
     Dosage: 8.4 MG, 1X/WEEK
     Route: 058

REACTIONS (2)
  - Injection site pain [Unknown]
  - Device leakage [Unknown]
